FAERS Safety Report 4376110-4 (Version None)
Quarter: 2004Q2

REPORT INFORMATION
  Report Type: 
  Country: None (occurrence: None)
  Receive Date: 20040609
  Receipt Date: 20040609
  Transmission Date: 20050107
  Serious: Yes (Life-Threatening, Hospitalization)
  Sender: FDA-Public Use
  Company Number: None

PATIENT
  Age: 57 Year
  Sex: Female
  Weight: 185 kg

DRUGS (18)
  1. ZYVOX [Suspect]
     Indication: WOUND INFECTION
     Dosage: 600 MG PO BID
     Route: 048
     Dates: start: 20040228, end: 20040305
  2. LISINOPRIL [Concomitant]
  3. POTASSIUM [Concomitant]
  4. VITAMIN C [Concomitant]
  5. COUMADIN [Concomitant]
  6. DOLOPHINE [Concomitant]
  7. NEURONTIN [Concomitant]
  8. GAS-X [Concomitant]
  9. FUROSEMIDE [Concomitant]
  10. LIORESAL [Concomitant]
  11. ATENOLOL [Concomitant]
  12. DETROL LA [Concomitant]
  13. INSULIN [Concomitant]
  14. PROTONIX [Concomitant]
  15. LEXAPRO [Concomitant]
  16. SINGULAIR [Concomitant]
  17. FLAGYL [Concomitant]
  18. LEVAQUIN [Concomitant]

REACTIONS (4)
  - BLOODY DISCHARGE [None]
  - EPISTAXIS [None]
  - HAEMATURIA [None]
  - PLATELET COUNT DECREASED [None]
